FAERS Safety Report 24461648 (Version 1)
Quarter: 2024Q4

REPORT INFORMATION
  Report Type: Report from Study
  Country: US (occurrence: US)
  Receive Date: 20241018
  Receipt Date: 20241018
  Transmission Date: 20250115
  Serious: No
  Sender: ROCHE
  Company Number: US-ROCHE-3554208

PATIENT
  Age: 78 Year
  Sex: Male

DRUGS (2)
  1. RITUXAN [Suspect]
     Active Substance: RITUXIMAB
     Indication: Polymyositis
     Dosage: INFUSE 1000MG ON DAY 1 AND DAY15 AND EVERY 24 WEEKS ?STRENGTH: 500MG/50ML
     Route: 065
     Dates: start: 20230713
  2. LEVOFLOXACIN [Concomitant]
     Active Substance: LEVOFLOXACIN

REACTIONS (2)
  - Off label use [Unknown]
  - No adverse event [Unknown]
